FAERS Safety Report 8154504-9 (Version None)
Quarter: 2012Q1

REPORT INFORMATION
  Report Type: 
  Country: None (occurrence: None)
  Receive Date: 20120215
  Receipt Date: 20111019
  Transmission Date: 20120608
  Serious: Yes (Other)
  Sender: FDA-Public Use
  Company Number: AEUSA201100290

PATIENT
  Age: 62 Year
  Sex: Male
  Weight: 66 kg

DRUGS (7)
  1. PROFILNINE SD [Suspect]
     Indication: INTERNATIONAL NORMALISED RATIO INCREASED
     Dosage: 2250 IU; TOTAL; IV
     Route: 042
     Dates: start: 20101024, end: 20101024
  2. PROFILNINE SD [Suspect]
     Indication: SUBDURAL HAEMATOMA
     Dosage: 2250 IU; TOTAL; IV
     Route: 042
     Dates: start: 20101024, end: 20101024
  3. PHYTONADIONE [Suspect]
     Indication: SUBDURAL HAEMATOMA
     Dosage: 5 MG; TOTAL; IV
     Route: 042
     Dates: start: 20101025, end: 20101025
  4. PHYTONADIONE [Suspect]
     Indication: INTERNATIONAL NORMALISED RATIO INCREASED
     Dosage: 5 MG; TOTAL; IV
     Route: 042
     Dates: start: 20101025, end: 20101025
  5. FACTOR VIIA [Suspect]
     Indication: INTERNATIONAL NORMALISED RATIO INCREASED
     Dosage: 1 MG; TOTAL; IV
     Route: 042
     Dates: start: 20101024, end: 20101024
  6. FACTOR VIIA [Suspect]
     Indication: SUBDURAL HAEMATOMA
     Dosage: 1 MG; TOTAL; IV
     Route: 042
     Dates: start: 20101024, end: 20101024
  7. WARFARIN SODIUM [Concomitant]

REACTIONS (1)
  - DEEP VEIN THROMBOSIS [None]
